FAERS Safety Report 18794698 (Version 2)
Quarter: 2021Q1

REPORT INFORMATION
  Report Type: Spontaneous
  Country: CH (occurrence: CH)
  Receive Date: 20210127
  Receipt Date: 20210201
  Transmission Date: 20210419
  Serious: Yes (Other)
  Sender: FDA-Public Use
  Company Number: CH-PFIZER INC-2021068428

PATIENT
  Age: 62 Year
  Sex: Male

DRUGS (15)
  1. DAPTOMYCIN. [Concomitant]
     Active Substance: DAPTOMYCIN
     Indication: COVID-19
     Dosage: UNK
  2. TRIMETHOPRIM SULFAMETHOXAZOLE [Concomitant]
     Active Substance: SULFAMETHOXAZOLE\TRIMETHOPRIM
     Indication: PROPHYLAXIS
  3. PREDNISOLONE. [Concomitant]
     Active Substance: PREDNISOLONE
     Indication: COVID-19
     Dosage: UNK
  4. AMIODARONE [Suspect]
     Active Substance: AMIODARONE
     Indication: COVID-19
     Dosage: UNK
  5. VORICONAZOLE. [Concomitant]
     Active Substance: VORICONAZOLE
     Indication: COVID-19
     Dosage: UNK
  6. ACICLOVIR [Concomitant]
     Active Substance: ACYCLOVIR
     Indication: COVID-19
     Dosage: UNK
  7. TRIMETHOPRIM SULFAMETHOXAZOLE [Concomitant]
     Active Substance: SULFAMETHOXAZOLE\TRIMETHOPRIM
     Indication: COVID-19
     Dosage: UNK
  8. PANTOPRAZOLE [Suspect]
     Active Substance: PANTOPRAZOLE
     Indication: COVID-19
     Dosage: UNK
  9. AMOXICILLIN + CLAVULANIC ACID [Concomitant]
     Active Substance: AMOXICILLIN\CLAVULANIC ACID
     Indication: COVID-19
     Dosage: UNK
  10. IMIPENEM [Concomitant]
     Active Substance: IMIPENEM
     Indication: COVID-19
     Dosage: UNK
  11. VANCOMYCIN [Concomitant]
     Active Substance: VANCOMYCIN
     Indication: COVID-19
     Dosage: UNK
  12. HYDROXYCHLOROQUINE [Concomitant]
     Active Substance: HYDROXYCHLOROQUINE
     Indication: COVID-19
     Dosage: UNK
  13. TIGECYCLINE. [Concomitant]
     Active Substance: TIGECYCLINE
     Indication: COVID-19
     Dosage: UNK
  14. MEROPENEM. [Suspect]
     Active Substance: MEROPENEM
     Indication: COVID-19
     Dosage: UNK
  15. PIPERACILLIN/TAZOBACTAM [Suspect]
     Active Substance: PIPERACILLIN SODIUM\TAZOBACTAM SODIUM
     Indication: COVID-19
     Dosage: UNK

REACTIONS (4)
  - Rash maculo-papular [Recovering/Resolving]
  - Haemolysis [Recovered/Resolved]
  - Tubulointerstitial nephritis [Recovered/Resolved]
  - Off label use [Unknown]
